FAERS Safety Report 11643536 (Version 1)
Quarter: 2015Q4

REPORT INFORMATION
  Report Type: Not Available
  Country: SE (occurrence: SE)
  Receive Date: 20151020
  Receipt Date: 20151020
  Transmission Date: 20160304
  Serious: Yes (Other)
  Sender: FDA-Public Use
  Company Number: SE-MUNDIPHARMA DS AND PHARMACOVIGILANCE-GBR-2015-0031336

PATIENT

DRUGS (4)
  1. CITODON [Concomitant]
     Active Substance: ACETAMINOPHEN\CODEINE PHOSPHATE
  2. LYRICA [Concomitant]
     Active Substance: PREGABALIN
  3. NORSPAN [Suspect]
     Active Substance: BUPRENORPHINE
     Indication: BACK PAIN
     Dosage: 2 PL?STER
     Route: 062
     Dates: start: 2012
  4. LOSARTAN. [Concomitant]
     Active Substance: LOSARTAN

REACTIONS (4)
  - Skin wound [Recovered/Resolved]
  - Erythema [Unknown]
  - Pruritus generalised [Not Recovered/Not Resolved]
  - Hyperhidrosis [Not Recovered/Not Resolved]

NARRATIVE: CASE EVENT DATE: 2015
